FAERS Safety Report 22286681 (Version 1)
Quarter: 2023Q2

REPORT INFORMATION
  Report Type: Spontaneous
  Country: US (occurrence: US)
  Receive Date: 20230505
  Receipt Date: 20230505
  Transmission Date: 20230721
  Serious: No
  Sender: FDA-Public Use
  Company Number: US-ABBVIE-4745942

PATIENT
  Age: 52 Year
  Sex: Male
  Weight: 90.718 kg

DRUGS (1)
  1. SKYRIZI [Suspect]
     Active Substance: RISANKIZUMAB-RZAA
     Indication: Crohn^s disease
     Dosage: FORM STRENGTH: 360 MG
     Route: 058
     Dates: start: 202212

REACTIONS (3)
  - Injection site induration [Recovering/Resolving]
  - Injection site swelling [Recovering/Resolving]
  - Injection site papule [Recovering/Resolving]

NARRATIVE: CASE EVENT DATE: 20230426
